FAERS Safety Report 15207104 (Version 2)
Quarter: 2018Q4

REPORT INFORMATION
  Report Type: Spontaneous
  Country: PT (occurrence: PT)
  Receive Date: 20180727
  Receipt Date: 20181024
  Transmission Date: 20190204
  Serious: Yes (Life-Threatening, Hospitalization, Other)
  Sender: FDA-Public Use
  Company Number: PT-BAUSCH-BL-2018-020077

PATIENT
  Age: 48 Year
  Sex: Female
  Weight: 77 kg

DRUGS (17)
  1. CHLORDIAZEPOXIDE. [Interacting]
     Active Substance: CHLORDIAZEPOXIDE
     Indication: PRODUCT USE IN UNAPPROVED INDICATION
  2. BUPROPION. [Interacting]
     Active Substance: BUPROPION
     Indication: OFF LABEL USE
  3. FLECAINIDE [Concomitant]
     Active Substance: FLECAINIDE
     Indication: VENTRICULAR EXTRASYSTOLES
     Route: 048
     Dates: start: 201605
  4. PHENOLPHTHALEIN [Interacting]
     Active Substance: PHENOLPHTHALEIN
     Indication: WEIGHT DECREASED
     Route: 048
     Dates: start: 201708, end: 201804
  5. CASCARA [Suspect]
     Active Substance: RHAMNUS PURSHIANA BARK EXTRACT
     Indication: WEIGHT DECREASED
     Dosage: 100 UNSPECIFIED UNIT
     Route: 048
     Dates: start: 201708, end: 201804
  6. METFORMIN [Interacting]
     Active Substance: METFORMIN HYDROCHLORIDE
     Indication: WEIGHT DECREASED
     Route: 048
     Dates: start: 201708, end: 201804
  7. BUPROPION. [Interacting]
     Active Substance: BUPROPION
     Indication: WEIGHT DECREASED
     Route: 048
     Dates: start: 201708, end: 201804
  8. CHROMIUM PICOLINATE [Interacting]
     Active Substance: CHROMIUM PICOLINATE
     Indication: WEIGHT DECREASED
     Route: 048
     Dates: start: 201708, end: 201804
  9. TOPIRAMATE. [Interacting]
     Active Substance: TOPIRAMATE
     Indication: WEIGHT DECREASED
     Route: 048
     Dates: start: 201708, end: 201804
  10. CHLORDIAZEPOXIDE. [Suspect]
     Active Substance: CHLORDIAZEPOXIDE
     Indication: WEIGHT DECREASED
     Dosage: 10 MG
     Route: 048
     Dates: start: 201708, end: 201804
  11. FUROSEMIDE. [Interacting]
     Active Substance: FUROSEMIDE
     Indication: WEIGHT DECREASED
     Route: 048
     Dates: start: 201708, end: 201804
  12. METFORMIN [Interacting]
     Active Substance: METFORMIN HYDROCHLORIDE
     Indication: OFF LABEL USE
  13. FUROSEMIDE. [Interacting]
     Active Substance: FUROSEMIDE
     Indication: OFF LABEL USE
  14. CENTELLA ASIATICA [Interacting]
     Active Substance: CENTELLA ASIATICA
     Indication: WEIGHT DECREASED
     Route: 048
     Dates: start: 201708, end: 201804
  15. ORLISTAT. [Interacting]
     Active Substance: ORLISTAT
     Indication: WEIGHT DECREASED
     Route: 048
     Dates: start: 201708, end: 201804
  16. ORLISTAT. [Interacting]
     Active Substance: ORLISTAT
     Indication: OFF LABEL USE
  17. MINULET [Interacting]
     Active Substance: ETHINYL ESTRADIOL\GESTODENE
     Indication: CONTRACEPTION
     Route: 048
     Dates: start: 201711, end: 201804

REACTIONS (7)
  - Headache [Recovering/Resolving]
  - Thalamic infarction [Not Recovered/Not Resolved]
  - Cerebral venous thrombosis [Recovering/Resolving]
  - Slow response to stimuli [Recovering/Resolving]
  - Fatigue [Recovering/Resolving]
  - Bradyphrenia [Recovering/Resolving]
  - Product use in unapproved indication [Recovered/Resolved]

NARRATIVE: CASE EVENT DATE: 201708
